FAERS Safety Report 8730502 (Version 2)
Quarter: 2012Q4

REPORT INFORMATION
  Report Type: Report from Study
  Country: JP (occurrence: JP)
  Receive Date: 20120817
  Receipt Date: 20121026
  Transmission Date: 20130627
  Serious: No
  Sender: FDA-Public Use
  Company Number: JP-ABBOTT-12P-087-0967850-00

PATIENT
  Age: 57 Year
  Sex: Male

DRUGS (5)
  1. KALETRA TABLETS [Suspect]
     Indication: HIV INFECTION
     Route: 048
     Dates: start: 20061204
  2. KALETRA TABLETS [Suspect]
  3. TRUVADA [Suspect]
     Indication: HIV INFECTION
     Route: 048
     Dates: start: 20081201
  4. EFAVIRENZ [Concomitant]
     Indication: HIV INFECTION
     Dates: start: 20041102
  5. AMLODIPINE BESILATE [Concomitant]
     Indication: HYPERTENSION
     Dates: start: 20041115

REACTIONS (1)
  - Blood creatinine increased [Not Recovered/Not Resolved]
